FAERS Safety Report 6055380-0 (Version None)
Quarter: 2009Q1

REPORT INFORMATION
  Report Type: 
  Country: None (occurrence: None)
  Receive Date: 20090123
  Receipt Date: 20090112
  Transmission Date: 20090719
  Serious: Yes (Other)
  Sender: FDA-Public Use
  Company Number: 2009S1000871

PATIENT
  Age: 50 Year
  Sex: Male
  Weight: 72.5755 kg

DRUGS (4)
  1. CYCLOBENZAPRINE HCL [Suspect]
     Indication: MUSCLE SPASMS
     Dosage: 10 MG; 3 TIMES A DAY; ORAL
     Route: 048
     Dates: start: 20000101, end: 20081201
  2. CYCLOBENZAPRINE HCL [Suspect]
     Indication: PAIN
     Dosage: 10 MG; 3 TIMES A DAY; ORAL
     Route: 048
     Dates: start: 20000101, end: 20081201
  3. ETODOLAC [Concomitant]
  4. SIMVASTATIN [Concomitant]

REACTIONS (7)
  - BLINDNESS [None]
  - CONSTIPATION [None]
  - GAIT DISTURBANCE [None]
  - INSOMNIA [None]
  - MULTIPLE SCLEROSIS [None]
  - MUSCULAR WEAKNESS [None]
  - RESTLESSNESS [None]
